FAERS Safety Report 4726197-1 (Version None)
Quarter: 2005Q3

REPORT INFORMATION
  Report Type: 
  Country: None (occurrence: None)
  Receive Date: 20050725
  Receipt Date: 20050713
  Transmission Date: 20060218
  Serious: Yes (Hospitalization)
  Sender: FDA-Public Use
  Company Number: 2005BI013262

PATIENT
  Age: 67 Year
  Sex: Female

DRUGS (4)
  1. AMEVIVE [Suspect]
     Indication: PSORIASIS
     Dosage: 15 MG; QW; IM
     Route: 030
     Dates: start: 20041207, end: 20050224
  2. CYCLOSPORINE [Concomitant]
  3. LEVOTHYROXINE SODIUM [Concomitant]
  4. FELODIPINE [Concomitant]

REACTIONS (4)
  - BRONCHITIS [None]
  - CD4 LYMPHOCYTES DECREASED [None]
  - DRUG EFFECT DECREASED [None]
  - PSORIASIS [None]
